FAERS Safety Report 8746332 (Version 2)
Quarter: 2012Q4

REPORT INFORMATION
  Report Type: 
  Country: CA (occurrence: CA)
  Receive Date: 20120827
  Receipt Date: 20120910
  Transmission Date: 20130627
  Serious: Yes (Hospitalization, Other)
  Sender: FDA-Public Use
  Company Number: PHHY2011CA80181

PATIENT
  Age: 76 Year
  Sex: Female

DRUGS (8)
  1. ACLASTA [Suspect]
     Indication: OSTEOPOROSIS
     Route: 042
     Dates: start: 20090804
  2. ACLASTA [Suspect]
     Route: 042
     Dates: start: 20100810
  3. ACLASTA [Suspect]
     Route: 042
     Dates: start: 20110829
  4. CALCIUM [Concomitant]
  5. VITAMIN D [Concomitant]
  6. CITALOPRAM [Concomitant]
  7. HYDROCHLOROTHIAZIDE [Concomitant]
  8. CRESTOR [Concomitant]

REACTIONS (5)
  - Fall [Unknown]
  - Hip fracture [Unknown]
  - Upper limb fracture [Unknown]
  - Blood pressure increased [Recovered/Resolved]
  - Blood creatinine decreased [Unknown]
